FAERS Safety Report 23467769 (Version 1)
Quarter: 2024Q1

REPORT INFORMATION
  Report Type: Spontaneous
  Country: US (occurrence: US)
  Receive Date: 20240201
  Receipt Date: 20240201
  Transmission Date: 20240409
  Serious: Yes (Hospitalization, Other)
  Sender: FDA-Public Use
  Company Number: US-PFIZER INC-202300454067

PATIENT
  Age: 80 Year
  Sex: Male
  Weight: 90.72 kg

DRUGS (1)
  1. SOMAVERT [Suspect]
     Active Substance: PEGVISOMANT
     Indication: Acromegaly
     Dosage: 10 MG PER DAY NEEDLE (INJECTION) IN STOMACH OR LEG
     Dates: start: 2017

REACTIONS (5)
  - Illness [Not Recovered/Not Resolved]
  - Rectal cancer [Unknown]
  - Colitis ulcerative [Unknown]
  - Dehydration [Unknown]
  - Weight decreased [Unknown]

NARRATIVE: CASE EVENT DATE: 20230101
